FAERS Safety Report 5299415-1 (Version None)
Quarter: 2007Q2

REPORT INFORMATION
  Report Type: 
  Country: None (occurrence: None)
  Receive Date: 20070411
  Receipt Date: 20070411
  Transmission Date: 20071010
  Serious: Yes (Hospitalization, Disabling)
  Sender: FDA-Public Use
  Company Number: None

PATIENT
  Sex: Female
  Weight: 58.9676 kg

DRUGS (1)
  1. GABITRIL [Suspect]
     Indication: PAIN
     Dates: start: 20040101, end: 20050101

REACTIONS (6)
  - CONTUSION [None]
  - CONVULSION [None]
  - HAND FRACTURE [None]
  - HEAD INJURY [None]
  - PERIORBITAL HAEMATOMA [None]
  - TOOTH INJURY [None]
